FAERS Safety Report 11092511 (Version 1)
Quarter: 2015Q2

REPORT INFORMATION
  Report Type: Spontaneous
  Country: US (occurrence: None)
  Receive Date: 20150505
  Receipt Date: 20150505
  Transmission Date: 20150821
  Serious: No
  Sender: FDA-Public Use
  Company Number: None

PATIENT
  Age: 61 Year
  Sex: Male
  Weight: 60 kg

DRUGS (2)
  1. FORTEO [Suspect]
     Active Substance: TERIPARATIDE
     Indication: BONE DISORDER
     Route: 058
     Dates: start: 20150206
  2. FORTEO [Suspect]
     Active Substance: TERIPARATIDE
     Indication: CHONDROPATHY
     Route: 058
     Dates: start: 20150206

REACTIONS (2)
  - Chest pain [None]
  - Nipple pain [None]

NARRATIVE: CASE EVENT DATE: 20150501
